FAERS Safety Report 23123580 (Version 8)
Quarter: 2025Q2

REPORT INFORMATION
  Report Type: Report from Study
  Country: CA (occurrence: CA)
  Receive Date: 20231030
  Receipt Date: 20250620
  Transmission Date: 20250716
  Serious: Yes (Other)
  Sender: ROCHE
  Company Number: CA-ROCHE-1510943

PATIENT
  Age: 58 Year
  Sex: Female
  Weight: 65 kg

DRUGS (25)
  1. RITUXAN [Suspect]
     Active Substance: RITUXIMAB
     Indication: Rheumatoid arthritis
     Route: 042
     Dates: start: 20130514, end: 20150922
  2. RITUXAN [Suspect]
     Active Substance: RITUXIMAB
     Route: 042
     Dates: start: 20160606, end: 20200528
  3. RITUXAN [Suspect]
     Active Substance: RITUXIMAB
     Route: 042
     Dates: start: 20200930
  4. RITUXAN [Suspect]
     Active Substance: RITUXIMAB
     Route: 042
  5. RITUXAN [Suspect]
     Active Substance: RITUXIMAB
     Route: 042
  6. RITUXAN [Suspect]
     Active Substance: RITUXIMAB
     Route: 042
  7. RITUXAN [Suspect]
     Active Substance: RITUXIMAB
     Route: 042
  8. RITUXAN [Suspect]
     Active Substance: RITUXIMAB
     Route: 042
  9. RITUXAN [Suspect]
     Active Substance: RITUXIMAB
     Route: 042
  10. RITUXAN [Suspect]
     Active Substance: RITUXIMAB
     Route: 042
  11. RITUXAN [Suspect]
     Active Substance: RITUXIMAB
     Route: 042
  12. RITUXAN [Suspect]
     Active Substance: RITUXIMAB
     Route: 042
  13. RITUXAN [Suspect]
     Active Substance: RITUXIMAB
     Route: 042
  14. RITUXAN [Suspect]
     Active Substance: RITUXIMAB
     Route: 042
     Dates: start: 20200930
  15. SOLU-MEDROL [Suspect]
     Active Substance: METHYLPREDNISOLONE SODIUM SUCCINATE
     Indication: Product used for unknown indication
     Route: 065
     Dates: end: 20180102
  16. DIPHENHYDRAMINE [Concomitant]
     Active Substance: DIPHENHYDRAMINE
     Indication: Premedication
     Route: 048
     Dates: start: 20130514
  17. ACETAMINOPHEN [Concomitant]
     Active Substance: ACETAMINOPHEN
     Indication: Premedication
     Route: 048
     Dates: start: 20130514
  18. METHYLPREDNISOLONE [Concomitant]
     Active Substance: METHYLPREDNISOLONE
     Indication: Premedication
     Route: 042
     Dates: start: 20130514
  19. METHOTREXATE [Concomitant]
     Active Substance: METHOTREXATE
  20. LEUCOVORIN [Concomitant]
     Active Substance: LEUCOVORIN\LEUCOVORIN CALCIUM
  21. FOLIC ACID [Concomitant]
     Active Substance: FOLIC ACID
  22. LIPITOR [Concomitant]
     Active Substance: ATORVASTATIN CALCIUM
  23. ESOMEPRAZOLE [Concomitant]
     Active Substance: ESOMEPRAZOLE
  24. DICLOFENAC [Concomitant]
     Active Substance: DICLOFENAC
  25. CORTISONE [Concomitant]
     Active Substance: CORTISONE
     Indication: Rash pruritic
     Route: 061
     Dates: start: 20210519

REACTIONS (29)
  - Infusion related reaction [Unknown]
  - Somnolence [Unknown]
  - Fatigue [Unknown]
  - Urinary tract infection [Unknown]
  - Uterine infection [Not Recovered/Not Resolved]
  - Cough [Not Recovered/Not Resolved]
  - Nasal congestion [Not Recovered/Not Resolved]
  - Pharyngitis [Unknown]
  - Rhinitis [Unknown]
  - Blood pressure increased [Unknown]
  - Oxygen saturation decreased [Unknown]
  - Body temperature decreased [Unknown]
  - Poor venous access [Unknown]
  - Infusion related reaction [Unknown]
  - Blood pressure fluctuation [Unknown]
  - Blood pressure systolic increased [Unknown]
  - Blood pressure systolic abnormal [Unknown]
  - Hypertension [Unknown]
  - Drug ineffective [Unknown]
  - Erythema [Recovered/Resolved]
  - Heart rate decreased [Unknown]
  - Photosensitivity reaction [Recovered/Resolved]
  - Rash [Recovered/Resolved]
  - Blood pressure fluctuation [Unknown]
  - Blood pressure diastolic abnormal [Unknown]
  - Headache [Unknown]
  - Ill-defined disorder [Unknown]
  - Muscle spasms [Unknown]
  - Headache [Recovered/Resolved]

NARRATIVE: CASE EVENT DATE: 20141217
